FAERS Safety Report 6854342-0 (Version None)
Quarter: 2010Q3

REPORT INFORMATION
  Report Type: 
  Country: None (occurrence: None)
  Receive Date: 20100717
  Receipt Date: 20080102
  Transmission Date: 20110219
  Serious: No
  Sender: FDA-Public Use
  Company Number: US-PFIZER INC-2008001466

PATIENT
  Sex: Female
  Weight: 68.181 kg

DRUGS (3)
  1. CHANTIX [Suspect]
     Indication: SMOKING CESSATION THERAPY
     Dates: start: 20071222
  2. PRILOSEC [Concomitant]
  3. HYDROCODONE [Concomitant]
     Indication: BACK DISORDER

REACTIONS (3)
  - NAUSEA [None]
  - NIGHTMARE [None]
  - SLEEP DISORDER [None]
